FAERS Safety Report 14259165 (Version 1)
Quarter: 2017Q4

REPORT INFORMATION
  Report Type: Spontaneous
  Country: US (occurrence: US)
  Receive Date: 20171207
  Receipt Date: 20171207
  Transmission Date: 20180321
  Serious: Yes (Disabling)
  Sender: FDA-Public Use
  Company Number: None

PATIENT
  Age: 54 Year
  Sex: Female
  Weight: 66.15 kg

DRUGS (12)
  1. NATURE-THROID [Concomitant]
     Active Substance: THYROID, PORCINE
  2. ESTRADIOL. [Concomitant]
     Active Substance: ESTRADIOL
  3. VITAMIN D [Concomitant]
     Active Substance: CHOLECALCIFEROL
  4. PHOSPHATADYL SERINE [Concomitant]
  5. OMEGA 3,6,9 [Concomitant]
  6. VIT B-12 [Concomitant]
  7. BUPROPION HCL TAB 300XL [Suspect]
     Active Substance: BUPROPION HYDROCHLORIDE
     Indication: FATIGUE
     Dosage: ?          QUANTITY:30 TABLET(S);?
     Route: 048
  8. LIOTHYRONINE SODIUM. [Concomitant]
     Active Substance: LIOTHYRONINE SODIUM
  9. PROGESTERONE. [Concomitant]
     Active Substance: PROGESTERONE
  10. BUPROPION HCL TAB 300XL [Suspect]
     Active Substance: BUPROPION HYDROCHLORIDE
     Indication: DEPRESSION
     Dosage: ?          QUANTITY:30 TABLET(S);?
     Route: 048
  11. INOSINE [Concomitant]
     Active Substance: INOSINE
  12. PROBIOTIC [Concomitant]
     Active Substance: PROBIOTICS NOS

REACTIONS (9)
  - Middle insomnia [None]
  - Depression [None]
  - Nausea [None]
  - Mood swings [None]
  - Tremor [None]
  - Agitation [None]
  - Anger [None]
  - Somnolence [None]
  - Product substitution issue [None]

NARRATIVE: CASE EVENT DATE: 20171001
